FAERS Safety Report 23626657 (Version 2)
Quarter: 2024Q2

REPORT INFORMATION
  Report Type: Spontaneous
  Country: US (occurrence: US)
  Receive Date: 20240313
  Receipt Date: 20240425
  Transmission Date: 20240715
  Serious: Yes (Other)
  Sender: FDA-Public Use
  Company Number: HIKM2400949

PATIENT
  Sex: Male

DRUGS (1)
  1. METHADONE [Suspect]
     Active Substance: METHADONE HYDROCHLORIDE
     Indication: Pain
     Dosage: 1 TABLET IN THE MORNING
     Route: 065

REACTIONS (14)
  - Hangover [Unknown]
  - Diplopia [Unknown]
  - Gait inability [Unknown]
  - Circulatory collapse [Unknown]
  - Asthenia [Unknown]
  - Loss of consciousness [Unknown]
  - Nausea [Unknown]
  - Near death experience [Unknown]
  - Feeling abnormal [Unknown]
  - Therapeutic product effect delayed [Unknown]
  - Product use issue [Unknown]
  - Counterfeit product administered [Unknown]
  - Therapeutic product effect prolonged [Unknown]
  - Overdose [Unknown]
